FAERS Safety Report 11534977 (Version 1)
Quarter: 2015Q3

REPORT INFORMATION
  Report Type: Spontaneous
  Country: US (occurrence: None)
  Receive Date: 20150921
  Receipt Date: 20150921
  Transmission Date: 20151125
  Serious: Yes (Life-Threatening, Hospitalization)
  Sender: FDA-Public Use
  Company Number: None

PATIENT
  Age: 22 Month
  Sex: Female
  Weight: 11.34 kg

DRUGS (2)
  1. CODEINE [Suspect]
     Active Substance: CODEINE
     Indication: POSTOPERATIVE CARE
     Dates: start: 20100628, end: 20100629
  2. CODEINE [Suspect]
     Active Substance: CODEINE
     Indication: PAIN MANAGEMENT
     Dates: start: 20100628, end: 20100629

REACTIONS (3)
  - Respiratory distress [None]
  - Seizure [None]
  - Cardio-respiratory arrest [None]

NARRATIVE: CASE EVENT DATE: 20100629
